FAERS Safety Report 4423697-9 (Version None)
Quarter: 2004Q3

REPORT INFORMATION
  Report Type: 
  Country: None (occurrence: None)
  Receive Date: 20040805
  Receipt Date: 20040729
  Transmission Date: 20050211
  Serious: Yes (Death)
  Sender: FDA-Public Use
  Company Number: HU-JNJFOC-20040707847

PATIENT
  Age: 56 Year
  Sex: Female

DRUGS (1)
  1. CAELYX       (DOXORUBICIN HYDROCHLORIDE) LIPOSOME INJECTION [Suspect]
     Indication: BREAST CANCER METASTATIC
     Dosage: 20 MG, INTRAVENOUS
     Route: 042
     Dates: start: 20040401, end: 20040601

REACTIONS (1)
  - PULMONARY EMBOLISM [None]
